FAERS Safety Report 9733879 (Version 1)
Quarter: 2013Q4

REPORT INFORMATION
  Report Type: Spontaneous
  Country: FR (occurrence: FR)
  Receive Date: 20131205
  Receipt Date: 20131205
  Transmission Date: 20140711
  Serious: Yes (Hospitalization)
  Sender: FDA-Public Use
  Company Number: FR-009507513-1311FRA012503

PATIENT
  Age: 59 Year
  Sex: Male

DRUGS (4)
  1. CANCIDAS [Suspect]
     Indication: BRONCHOPULMONARY ASPERGILLOSIS
     Dosage: 50 MG, QD
     Route: 042
     Dates: start: 20130903, end: 20131017
  2. VFEND [Suspect]
     Indication: BRONCHOPULMONARY ASPERGILLOSIS
     Dosage: 200 MG, BID
     Route: 048
     Dates: start: 20130718
  3. REVOLADE [Suspect]
     Indication: THROMBOCYTOPENIA
     Dosage: 25 MG, TID
     Route: 048
     Dates: start: 20130725
  4. VALACYCLOVIR HYDROCHLORIDE [Suspect]
     Dosage: 500 MG, QD
     Route: 048
     Dates: start: 20130905

REACTIONS (1)
  - VIIth nerve paralysis [Recovered/Resolved]
